FAERS Safety Report 6882576-8 (Version None)
Quarter: 2010Q3

REPORT INFORMATION
  Report Type: 
  Country: None (occurrence: None)
  Receive Date: 20100701
  Receipt Date: 20090924
  Transmission Date: 20110219
  Serious: Yes (Hospitalization)
  Sender: FDA-Public Use
  Company Number: SPV1-2009-01905

PATIENT
  Age: 72 Year
  Sex: Male
  Weight: 56.7 kg

DRUGS (13)
  1. PENTASA [Suspect]
     Indication: CROHN'S DISEASE
     Dosage: 4000 MG, 1X/DAY;QD, ORAL; 2000 MG, 1XDAY:QD, ORAL
     Route: 048
     Dates: end: 20090101
  2. PENTASA [Suspect]
     Indication: CROHN'S DISEASE
     Dosage: 4000 MG, 1X/DAY;QD, ORAL; 2000 MG, 1XDAY:QD, ORAL
     Route: 048
     Dates: start: 20090101
  3. CHOLESTYRAMINE (COLESTYRAMINE) [Concomitant]
  4. LOPERAMIDE (LOPERAMIDE) [Concomitant]
  5. PREDNISONE [Concomitant]
  6. CITALOPRAM HYDROBROMIDE [Concomitant]
  7. CALCIUM (CALCIUM) [Concomitant]
  8. SEE IMAGE [Concomitant]
  9. METOPROLOL SUCCINATE [Concomitant]
  10. THIAMINE (THIAMINE) [Concomitant]
  11. FOLIC ACID [Concomitant]
  12. IRON (IRON) [Concomitant]
  13. BENICAR [Concomitant]

REACTIONS (6)
  - CHEST DISCOMFORT [None]
  - DEMENTIA [None]
  - HYPERSENSITIVITY [None]
  - NEUROPATHY PERIPHERAL [None]
  - OFF LABEL USE [None]
  - SLEEP DISORDER [None]
